FAERS Safety Report 5312624-8 (Version None)
Quarter: 2007Q2

REPORT INFORMATION
  Report Type: 
  Country: None (occurrence: None)
  Receive Date: 20070430
  Receipt Date: 20070116
  Transmission Date: 20071010
  Serious: No
  Sender: FDA-Public Use
  Company Number: 2007UW00830

PATIENT
  Age: 46 Year
  Sex: Female
  Weight: 53.1 kg

DRUGS (9)
  1. NEXIUM [Suspect]
     Indication: GASTROOESOPHAGEAL REFLUX DISEASE
     Route: 048
  2. NEXIUM [Suspect]
     Route: 048
  3. AVINZA [Concomitant]
  4. CELEBREX [Concomitant]
  5. ACETAMINOPHEN AND HYDROCODONE BITARTRATE [Concomitant]
     Dosage: 7.5/500MG
  6. TRAMADOL HCL [Concomitant]
  7. SKELAXIN [Concomitant]
  8. METHOTREXATE [Concomitant]
     Dosage: .8 CC
  9. PROPOXYPHENE NAPSYLATE AND ACETAMINOPHEN [Concomitant]
     Dosage: 100/650MG

REACTIONS (1)
  - THERAPEUTIC RESPONSE UNEXPECTED [None]
